FAERS Safety Report 9779054 (Version 2)
Quarter: 2013Q4

REPORT INFORMATION
  Report Type: Spontaneous
  Country: US (occurrence: US)
  Receive Date: 20131223
  Receipt Date: 20131223
  Transmission Date: 20140711
  Serious: Yes (Other)
  Sender: FDA-Public Use
  Company Number: US-ENDO PHARMACEUTICALS INC.-OPCR20130412

PATIENT
  Age: 52 Year
  Sex: Female

DRUGS (2)
  1. OPANA ER 40MG [Suspect]
     Indication: PAIN
     Route: 048
     Dates: start: 20131107, end: 20131107
  2. OPANA ER 40MG [Suspect]
     Route: 048
     Dates: end: 20131106

REACTIONS (2)
  - Wrong technique in drug usage process [Recovered/Resolved]
  - Drug dose omission [Recovered/Resolved]
